FAERS Safety Report 15018695 (Version 2)
Quarter: 2018Q2

REPORT INFORMATION
  Report Type: Spontaneous
  Country: JP (occurrence: JP)
  Receive Date: 20180616
  Receipt Date: 20180630
  Transmission Date: 20180711
  Serious: Yes (Hospitalization, Other)
  Sender: FDA-Public Use
  Company Number: JP-AMGEN-JPNSP2018081812

PATIENT
  Age: 7 Decade
  Sex: Male

DRUGS (3)
  1. PANITUMUMAB [Suspect]
     Active Substance: PANITUMUMAB
     Indication: PRODUCT USED FOR UNKNOWN INDICATION
     Dosage: 6 MG/KG, Q2WEEKS
     Route: 041
     Dates: start: 20180307
  2. IRINOTECAN HYDROCHLORIDE. [Suspect]
     Active Substance: IRINOTECAN HYDROCHLORIDE
     Indication: PRODUCT USED FOR UNKNOWN INDICATION
     Dosage: UNK
     Route: 041
     Dates: start: 20180307
  3. GIMERACIL W/OTERACIL POTASSIUM/TEGAFUR [Concomitant]
     Active Substance: GIMERACIL\OTERACIL\TEGAFUR
     Dosage: UNK
     Route: 048
     Dates: start: 20180307

REACTIONS (2)
  - Disease progression [Unknown]
  - Gastrointestinal perforation [Recovered/Resolved]

NARRATIVE: CASE EVENT DATE: 20180520
